FAERS Safety Report 5372202-1 (Version None)
Quarter: 2007Q2

REPORT INFORMATION
  Report Type: 
  Country: None (occurrence: None)
  Receive Date: 20070627
  Receipt Date: 20070622
  Transmission Date: 20071010
  Serious: Yes (Hospitalization)
  Sender: FDA-Public Use
  Company Number: B0476254A

PATIENT
  Sex: Female
  Weight: 30 kg

DRUGS (8)
  1. FLUTIDE DISKUS [Suspect]
     Route: 055
     Dates: start: 20070602, end: 20070618
  2. THEO-DUR [Concomitant]
     Route: 048
  3. VENETLIN [Concomitant]
     Route: 048
  4. MUCODYNE [Concomitant]
     Route: 048
  5. MUCOSOLVAN [Concomitant]
     Route: 048
  6. SINGULAIR [Concomitant]
     Route: 048
  7. ALBUTEROL [Concomitant]
     Route: 055
     Dates: start: 20070513
  8. QVAR 40 [Concomitant]
     Route: 055
     Dates: end: 20070602

REACTIONS (3)
  - ACCIDENTAL OVERDOSE [None]
  - NO ADVERSE DRUG EFFECT [None]
  - OVERDOSE [None]
